FAERS Safety Report 7242122-6 (Version None)
Quarter: 2011Q1

REPORT INFORMATION
  Report Type: 
  Country: None (occurrence: None)
  Receive Date: 20110124
  Receipt Date: 20101111
  Transmission Date: 20110831
  Serious: Yes (Hospitalization)
  Sender: FDA-Public Use
  Company Number: US-AMGEN-USASP2010004944

PATIENT
  Age: 59 Year
  Sex: Female

DRUGS (1)
  1. ENBREL [Suspect]
     Indication: ANKYLOSING SPONDYLITIS
     Dates: start: 20100505

REACTIONS (7)
  - TENDON RUPTURE [None]
  - IMPAIRED HEALING [None]
  - ALOPECIA [None]
  - RASH [None]
  - DRY SKIN [None]
  - ERYTHEMA [None]
  - SKIN WRINKLING [None]
